FAERS Safety Report 9341734 (Version 1)
Quarter: 2013Q2

REPORT INFORMATION
  Report Type: Spontaneous
  Country: FR (occurrence: FR)
  Receive Date: 20130611
  Receipt Date: 20130611
  Transmission Date: 20140414
  Serious: Yes (Hospitalization)
  Sender: FDA-Public Use
  Company Number: FR-MERCK-1306FRA000522

PATIENT
  Age: 75 Year
  Sex: Female

DRUGS (3)
  1. JANUMET [Suspect]
     Dosage: 1 DF, QD
     Route: 048
     Dates: start: 200901, end: 20130112
  2. LIPANTHYL [Suspect]
     Dosage: 1 DF, QD
     Route: 048
     Dates: start: 2006, end: 20130111
  3. ALDACTAZINE [Suspect]
     Dosage: 0.5 DF, QD
     Route: 048
     Dates: start: 2006, end: 20130111

REACTIONS (2)
  - Blood creatine phosphokinase increased [Recovered/Resolved]
  - Myalgia [Recovering/Resolving]
